FAERS Safety Report 20070466 (Version 5)
Quarter: 2021Q4

REPORT INFORMATION
  Report Type: Spontaneous
  Country: PT (occurrence: PT)
  Receive Date: 20211115
  Receipt Date: 20211222
  Transmission Date: 20220303
  Serious: Yes (Life-Threatening, Hospitalization, Disabling, Other)
  Sender: FDA-Public Use
  Company Number: PT-NOVARTISPH-NVSC2021PT256250

PATIENT
  Age: 79 Year
  Sex: Female

DRUGS (6)
  1. AZITHROMYCIN [Suspect]
     Active Substance: AZITHROMYCIN
     Indication: Tonsillitis
     Dosage: UNK
     Route: 065
  2. FLUCONAZOLE [Suspect]
     Active Substance: FLUCONAZOLE
     Indication: Product used for unknown indication
     Dosage: UNK
     Route: 065
  3. PIPERACILLIN SODIUM\TAZOBACTAM SODIUM [Suspect]
     Active Substance: PIPERACILLIN SODIUM\TAZOBACTAM SODIUM
     Indication: Product used for unknown indication
     Dosage: UNK
     Route: 065
  4. CANAGLIFLOZIN [Suspect]
     Active Substance: CANAGLIFLOZIN
     Indication: Diabetes mellitus
     Dosage: UNK
     Route: 065
  5. PENICILLIN [Suspect]
     Active Substance: PENICILLIN
     Indication: Tonsillitis
     Dosage: 1 DOSAGE FORM, UNKNOWN
     Route: 065
  6. PENICILLIN G BENZATHINE [Suspect]
     Active Substance: PENICILLIN G BENZATHINE
     Indication: Tonsillitis
     Dosage: UNK
     Route: 065

REACTIONS (11)
  - Stevens-Johnson syndrome [Recovering/Resolving]
  - SJS-TEN overlap [Unknown]
  - Toxic epidermal necrolysis [Recovering/Resolving]
  - Dysphagia [Recovering/Resolving]
  - Lip oedema [Recovering/Resolving]
  - Blister [Unknown]
  - Ulcerative keratitis [Recovering/Resolving]
  - Acute kidney injury [Recovering/Resolving]
  - Rash macular [Recovering/Resolving]
  - Oral candidiasis [Recovering/Resolving]
  - Skin lesion [Unknown]
